FAERS Safety Report 20717662 (Version 1)
Quarter: 2022Q2

REPORT INFORMATION
  Report Type: Spontaneous
  Country: US (occurrence: US)
  Receive Date: 20220417
  Receipt Date: 20220417
  Transmission Date: 20220720
  Serious: No
  Sender: FDA-Public Use
  Company Number: US-JNJFOC-20220415454

PATIENT
  Sex: Male

DRUGS (1)
  1. VELETRI [Suspect]
     Active Substance: EPOPROSTENOL
     Indication: Product used for unknown indication
     Dosage: 1500MCG/50ML
     Route: 042

REACTIONS (3)
  - Accidental exposure to product [Unknown]
  - Off label use [Unknown]
  - Incorrect route of product administration [Unknown]
